FAERS Safety Report 6865182-0 (Version None)
Quarter: 2010Q3

REPORT INFORMATION
  Report Type: 
  Country: None (occurrence: None)
  Receive Date: 20100721
  Receipt Date: 20080417
  Transmission Date: 20110219
  Serious: No
  Sender: FDA-Public Use
  Company Number: US-PFIZER INC-2008033138

PATIENT
  Sex: Male
  Weight: 122.5 kg

DRUGS (1)
  1. CHANTIX [Suspect]
     Indication: SMOKING CESSATION THERAPY
     Route: 048
     Dates: start: 20080201

REACTIONS (7)
  - ANXIETY [None]
  - CONSTIPATION [None]
  - FEELING ABNORMAL [None]
  - FEELING JITTERY [None]
  - IRRITABILITY [None]
  - POOR QUALITY SLEEP [None]
  - WITHDRAWAL SYNDROME [None]
